FAERS Safety Report 5157759-8 (Version None)
Quarter: 2006Q4

REPORT INFORMATION
  Report Type: 
  Country: None (occurrence: None)
  Receive Date: 20061115
  Receipt Date: 20061030
  Transmission Date: 20070319
  Serious: Yes (Other)
  Sender: FDA-Public Use
  Company Number: 2006EU002503

PATIENT
  Age: 44 Year
  Sex: Male

DRUGS (8)
  1. FK506                     (TACROLIMUS ) [Suspect]
     Indication: LIVER TRANSPLANT
     Dosage: 2 MG, BID, ORAL
     Route: 048
     Dates: start: 20060115, end: 20060115
  2. MYCOPHENOLATE MOFETIL [Suspect]
     Indication: LIVER TRANSPLANT
     Dosage: 1000 MG, UID/QD, ORAL
     Route: 048
     Dates: start: 20060109, end: 20060114
  3. MYCOPHENOLATE MOFETIL [Suspect]
     Indication: LIVER TRANSPLANT
     Dosage: 1000 MG, UID/QD, ORAL
     Route: 048
     Dates: start: 20060114
  4. ZENAPAX [Suspect]
     Indication: LIVER TRANSPLANT
     Dosage: 150 MG, UID/QD, IV NOS
     Route: 042
     Dates: start: 20060109, end: 20060116
  5. METHYLPREDNISOLONE [Suspect]
     Indication: LIVER TRANSPLANT
     Dosage: 150 MG, UID/QD
     Dates: start: 20060109
  6. PIPERILLINE                                 (PIPERACILLIN SODIUM) [Concomitant]
  7. ZOVIRAX [Concomitant]
  8. HEPARIN [Concomitant]

REACTIONS (6)
  - ASTHENIA [None]
  - GINGIVITIS [None]
  - HERPES VIRUS INFECTION [None]
  - KAPOSI'S SARCOMA [None]
  - LYMPHADENOPATHY [None]
  - WEIGHT DECREASED [None]
